FAERS Safety Report 8614551-7 (Version None)
Quarter: 2012Q3

REPORT INFORMATION
  Report Type: 
  Country: None (occurrence: None)
  Receive Date: 20120823
  Receipt Date: 20120820
  Transmission Date: 20120928
  Serious: Yes (Death)
  Sender: FDA-Public Use
  Company Number: PHEH2012US015877

PATIENT
  Sex: Male
  Weight: 85.261 kg

DRUGS (9)
  1. ZOCOR [Concomitant]
  2. ULTRAM [Concomitant]
  3. VICODIN [Concomitant]
  4. EXJADE [Suspect]
     Indication: BLOOD DISORDER
     Dosage: 1250 MG, QD
     Route: 048
     Dates: end: 20120718
  5. METFORMIN [Concomitant]
  6. METOPROLOL TARTRATE [Concomitant]
  7. LASIX [Concomitant]
  8. EXJADE [Suspect]
     Indication: LYMPHATIC SYSTEM NEOPLASM
  9. PREDNISONE TAB [Concomitant]

REACTIONS (2)
  - METASTATIC NEOPLASM [None]
  - GASTROINTESTINAL CARCINOMA [None]
